FAERS Safety Report 10741070 (Version 1)
Quarter: 2015Q1

REPORT INFORMATION
  Report Type: Spontaneous
  Country: US (occurrence: US)
  Receive Date: 20150127
  Receipt Date: 20150127
  Transmission Date: 20150721
  Serious: Yes (Disabling, Other)
  Sender: FDA-Public Use
  Company Number: US-009507513-1106USA02753

PATIENT
  Sex: Female
  Weight: 77.98 kg

DRUGS (6)
  1. FOSAMAX [Suspect]
     Active Substance: ALENDRONATE SODIUM
     Route: 048
     Dates: end: 201010
  2. ALENDRONATE SODIUM. [Suspect]
     Active Substance: ALENDRONATE SODIUM
     Indication: OSTEOPENIA
  3. FOSAMAX [Suspect]
     Active Substance: ALENDRONATE SODIUM
     Indication: OSTEOPOROSIS
     Dosage: 70 MG, UNK
     Route: 048
     Dates: start: 2005, end: 200803
  4. FOSAMAX [Suspect]
     Active Substance: ALENDRONATE SODIUM
     Indication: OSTEOPENIA
  5. ALENDRONATE SODIUM. [Suspect]
     Active Substance: ALENDRONATE SODIUM
     Indication: OSTEOPOROSIS
     Dosage: 70 MG, UNK
     Route: 048
     Dates: start: 200803, end: 201011
  6. SYNTHROID [Concomitant]
     Active Substance: LEVOTHYROXINE SODIUM
     Indication: HYPOTHYROIDISM
     Dosage: .75 MICROGRAM, QD
     Route: 048
     Dates: start: 1985

REACTIONS (19)
  - Pituitary tumour benign [Unknown]
  - Fracture [Unknown]
  - Arthritis [Unknown]
  - Bursitis [Unknown]
  - Fall [Unknown]
  - Deep vein thrombosis [Unknown]
  - Osteoporosis [Not Recovered/Not Resolved]
  - Colitis [Unknown]
  - Bone disorder [Unknown]
  - Pulmonary embolism [Unknown]
  - Low turnover osteopathy [Not Recovered/Not Resolved]
  - Spinal osteoarthritis [Unknown]
  - Pneumonia [Unknown]
  - Goitre [Unknown]
  - Femur fracture [Recovering/Resolving]
  - Glaucoma [Unknown]
  - Bone disorder [Not Recovered/Not Resolved]
  - Surgery [Unknown]
  - Bone disorder [Unknown]

NARRATIVE: CASE EVENT DATE: 2005
